FAERS Safety Report 8598325-1 (Version None)
Quarter: 2012Q3

REPORT INFORMATION
  Report Type: 
  Country: None (occurrence: None)
  Receive Date: 20120806
  Receipt Date: 20120806
  Transmission Date: 20120928
  Serious: Yes (Other)
  Sender: FDA-Public Use
  Company Number: None

PATIENT
  Age: 51 Year
  Sex: Male
  Weight: 90.7194 kg

DRUGS (2)
  1. VIRAMUNE XR [Suspect]
     Indication: HIV INFECTION
     Dosage: 1 TABLET BY MOUTH DAILY 1 PER DAY PO
     Route: 048
     Dates: start: 20120601, end: 20120704
  2. VIRAMUNE XR [Suspect]
     Indication: PROPHYLAXIS
     Dosage: 1 TABLET BY MOUTH DAILY 1 PER DAY PO
     Route: 048
     Dates: start: 20120601, end: 20120704

REACTIONS (3)
  - PRODUCT QUALITY ISSUE [None]
  - PRODUCT SOLUBILITY ABNORMAL [None]
  - MEDICATION RESIDUE [None]
